FAERS Safety Report 9063716 (Version 7)
Quarter: 2014Q1

REPORT INFORMATION
  Report Type: Report from Study
  Country: JP (occurrence: JP)
  Receive Date: 20130213
  Receipt Date: 20140130
  Transmission Date: 20141002
  Serious: Yes (Death, Life-Threatening, Hospitalization)
  Sender: FDA-Public Use
  Company Number: JP-PFIZER INC-2013053367

PATIENT
  Age: 45 Year
  Sex: Female
  Weight: 45 kg

DRUGS (21)
  1. XALKORI [Suspect]
     Indication: NON-SMALL CELL LUNG CANCER
     Dosage: 250 MG, 2X/DAY
     Route: 048
     Dates: start: 20120601, end: 20121113
  2. XALKORI [Suspect]
     Dosage: 250 MG, 2X/DAY ON ALTERNATE DAYS
     Route: 048
     Dates: start: 20121114, end: 20121226
  3. XALKORI [Suspect]
     Dosage: 250 MG, 2X/DAY
     Route: 048
     Dates: start: 20130109, end: 20130205
  4. OXYCONTIN [Concomitant]
     Dosage: 20 MG, 3X/DAY
     Route: 048
     Dates: start: 2012
  5. OXYCONTIN [Concomitant]
     Dosage: 5 MG, 2X/DAY
     Route: 048
     Dates: start: 20130128, end: 20130206
  6. DECADRON [Concomitant]
     Dosage: 0.5 MG, 2X/DAY
     Route: 048
     Dates: end: 20130123
  7. VOLTAREN [Concomitant]
     Dosage: 25 MG, 4X/DAY
     Route: 048
     Dates: end: 20130206
  8. ZYPREXA [Concomitant]
     Dosage: 25 MG, 1X/DAY
     Route: 048
  9. GABAPENTIN [Concomitant]
     Dosage: 300 MG, 1X/DAY
     Route: 048
  10. ISOBIDE [Concomitant]
     Dosage: 30 ML, 3X/DAY
     Route: 048
     Dates: end: 20130206
  11. SELTOUCH [Concomitant]
     Dosage: UNK
     Route: 061
  12. MAGMITT [Concomitant]
     Dosage: 330 MG, AS NEEDED
     Route: 048
     Dates: end: 20130206
  13. LECICARBON [Concomitant]
     Dosage: UNK
     Route: 061
     Dates: end: 20130206
  14. HYALEIN [Concomitant]
     Dosage: 1 GTT, 4X/DAY
  15. TAPROS [Concomitant]
     Dosage: 1 GTT, 1X/DAY
  16. COSOPT [Concomitant]
     Dosage: 1 GTT, 2X/DAY
  17. FLUITRAN [Concomitant]
     Dosage: 2 MG, 1X/DAY
     Route: 048
     Dates: start: 20121030, end: 20121212
  18. FLUITRAN [Concomitant]
     Dosage: 3 MG, 1X/DAY
     Route: 048
     Dates: start: 20121212, end: 20130206
  19. PRIMPERAN [Concomitant]
     Dosage: 5 MG, AS NEEDED
     Route: 048
     Dates: start: 20121031, end: 20130206
  20. NEXIUM [Concomitant]
     Dosage: 20 MG, 1X/DAY
     Route: 048
     Dates: start: 20121114, end: 20130206
  21. SOLU-MEDROL [Concomitant]
     Dosage: 1000 MG, 1X/DAY
     Dates: start: 20130205, end: 20130206

REACTIONS (5)
  - Respiratory failure [Fatal]
  - Malaise [Not Recovered/Not Resolved]
  - Disease progression [Fatal]
  - Non-small cell lung cancer [Fatal]
  - Platelet count decreased [Recovering/Resolving]
